FAERS Safety Report 9472898 (Version 1)
Quarter: 2013Q3

REPORT INFORMATION
  Report Type: Spontaneous
  Country: FR (occurrence: FR)
  Receive Date: 20130823
  Receipt Date: 20130823
  Transmission Date: 20140515
  Serious: Yes (Hospitalization)
  Sender: FDA-Public Use
  Company Number: FR-SANOFI-AVENTIS-2013SA082509

PATIENT
  Age: 48 Year
  Sex: Male

DRUGS (8)
  1. APROVEL [Suspect]
     Indication: HYPERTENSION
     Route: 048
     Dates: start: 201305, end: 20130627
  2. LASILIX [Suspect]
     Indication: HYPERTENSION
     Route: 048
  3. ZYLORIC [Suspect]
     Indication: HYPERURICAEMIA
     Route: 048
     Dates: end: 20130627
  4. KETUM [Suspect]
     Indication: PRODUCT USED FOR UNKNOWN INDICATION
     Route: 048
     Dates: start: 20130620, end: 20130627
  5. CORDARONE [Concomitant]
     Dates: end: 20130627
  6. CARDENSIEL [Concomitant]
  7. PREVISCAN [Concomitant]
     Dates: end: 20130627
  8. VITAMIN K [Concomitant]
     Route: 042
     Dates: start: 20130627

REACTIONS (3)
  - Hyponatraemia [Recovered/Resolved]
  - Hepatitis [Recovered/Resolved]
  - Renal failure acute [Recovered/Resolved]
